FAERS Safety Report 6456624-3 (Version None)
Quarter: 2009Q4

REPORT INFORMATION
  Report Type: 
  Country: None (occurrence: None)
  Receive Date: 20091125
  Receipt Date: 20091117
  Transmission Date: 20100525
  Serious: Yes (Other)
  Sender: FDA-Public Use
  Company Number: RU-JNJFOC-20091104946

PATIENT
  Age: 62 Year
  Sex: Female

DRUGS (5)
  1. TAVANIC [Suspect]
     Indication: DRUG USE FOR UNKNOWN INDICATION
     Route: 042
  2. PARIET [Concomitant]
     Route: 065
  3. DE-NOL [Concomitant]
     Route: 065
  4. FERRUM LEK [Concomitant]
     Route: 065
  5. THIORIDAZINE HCL [Concomitant]
     Route: 065

REACTIONS (3)
  - ABDOMINAL PAIN [None]
  - DIARRHOEA [None]
  - HYPERTHERMIA [None]
